FAERS Safety Report 6858507-3 (Version None)
Quarter: 2010Q3

REPORT INFORMATION
  Report Type: 
  Country: None (occurrence: None)
  Receive Date: 20100719
  Receipt Date: 20080310
  Transmission Date: 20110219
  Serious: No
  Sender: FDA-Public Use
  Company Number: US-PFIZER INC-2008013851

PATIENT
  Sex: Male
  Weight: 65.8 kg

DRUGS (2)
  1. CHANTIX [Suspect]
     Indication: SMOKING CESSATION THERAPY
     Route: 048
     Dates: start: 20080202
  2. COZAAR [Concomitant]
     Indication: HYPERTENSION

REACTIONS (7)
  - ANGER [None]
  - CAPILLARY DISORDER [None]
  - CONSTIPATION [None]
  - DIARRHOEA [None]
  - DRY MOUTH [None]
  - FEELING JITTERY [None]
  - PALPITATIONS [None]
